FAERS Safety Report 11916654 (Version 2)
Quarter: 2016Q1

REPORT INFORMATION
  Report Type: Spontaneous
  Country: US (occurrence: US)
  Receive Date: 20160114
  Receipt Date: 20160226
  Transmission Date: 20160526
  Serious: Yes (Hospitalization)
  Sender: FDA-Public Use
  Company Number: US-JNJFOC-20160107766

PATIENT
  Age: 52 Year
  Sex: Male

DRUGS (2)
  1. XARELTO [Suspect]
     Active Substance: RIVAROXABAN
     Indication: SURGERY
     Route: 048
  2. XARELTO [Suspect]
     Active Substance: RIVAROXABAN
     Indication: CAROTID ARTERY STENOSIS
     Route: 048

REACTIONS (3)
  - Off label use [Unknown]
  - Ischaemic stroke [Unknown]
  - Product use issue [Unknown]
